FAERS Safety Report 15578057 (Version 1)
Quarter: 2018Q4

REPORT INFORMATION
  Report Type: Report from Study
  Country: US (occurrence: US)
  Receive Date: 20181102
  Receipt Date: 20181102
  Transmission Date: 20190205
  Serious: Yes (Hospitalization, Other)
  Sender: FDA-Public Use
  Company Number: US-BEH-2018096332

PATIENT
  Age: 67 Year
  Sex: Female
  Weight: 90.25 kg

DRUGS (1)
  1. ZEMAIRA [Suspect]
     Active Substance: .ALPHA.1-PROTEINASE INHIBITOR HUMAN
     Indication: ALPHA-1 ANTI-TRYPSIN DEFICIENCY
     Dosage: WEEKLY
     Route: 042

REACTIONS (4)
  - Dyspnoea [Unknown]
  - Cough [Unknown]
  - Urinary tract infection [Unknown]
  - Systemic infection [Unknown]

NARRATIVE: CASE EVENT DATE: 201810
